FAERS Safety Report 7095623-8 (Version None)
Quarter: 2010Q4

REPORT INFORMATION
  Report Type: 
  Country: None (occurrence: None)
  Receive Date: 20101111
  Receipt Date: 20101109
  Transmission Date: 20110411
  Serious: Yes (Death)
  Sender: FDA-Public Use
  Company Number: GB-ELI_LILLY_AND_COMPANY-GB201011002248

PATIENT
  Age: 52 Year
  Sex: Male

DRUGS (2)
  1. BYETTA [Suspect]
     Dosage: UNK, UNKNOWN
     Route: 065
  2. INSULIN [Concomitant]

REACTIONS (3)
  - DRUG INTERACTION [None]
  - OFF LABEL USE [None]
  - SEPSIS [None]
